FAERS Safety Report 19534918 (Version 10)
Quarter: 2022Q1

REPORT INFORMATION
  Report Type: Report from Study
  Country: ES (occurrence: ES)
  Receive Date: 20210713
  Receipt Date: 20220204
  Transmission Date: 20220424
  Serious: Yes (Death, Other)
  Sender: FDA-Public Use
  Company Number: ES-ABBVIE-21K-144-3979515-00

PATIENT
  Sex: Male
  Weight: 68 kg

DRUGS (4)
  1. CARBIDOPA\LEVODOPA [Suspect]
     Active Substance: CARBIDOPA\LEVODOPA
     Indication: Parkinson^s disease
     Route: 050
     Dates: start: 20150326, end: 20210709
  2. CARBIDOPA\LEVODOPA [Suspect]
     Active Substance: CARBIDOPA\LEVODOPA
     Dosage: DOSE ADJUSTMENTS
     Route: 050
     Dates: start: 20210709, end: 20210719
  3. CARBIDOPA\LEVODOPA [Suspect]
     Active Substance: CARBIDOPA\LEVODOPA
     Dosage: DECREASE THE CONTINUOUS DOSE BY 0.2 ML PER HOUR
     Route: 050
     Dates: start: 20210719, end: 20210726
  4. CARBIDOPA\LEVODOPA [Suspect]
     Active Substance: CARBIDOPA\LEVODOPA
     Dosage: LOWERED THE CONTINUOUS DOSE 0.2 ML/H
     Route: 050
     Dates: start: 20210726

REACTIONS (20)
  - General physical health deterioration [Fatal]
  - Reduced facial expression [Recovering/Resolving]
  - General physical health deterioration [Recovering/Resolving]
  - Gait inability [Unknown]
  - Decubitus ulcer [Unknown]
  - Feeding disorder [Unknown]
  - Chromaturia [Recovered/Resolved]
  - Dysuria [Recovered/Resolved]
  - Dysstasia [Not Recovered/Not Resolved]
  - Urinary tract infection [Unknown]
  - Cognitive disorder [Unknown]
  - Mobility decreased [Recovering/Resolving]
  - Bedridden [Not Recovered/Not Resolved]
  - Malaise [Unknown]
  - Weight decreased [Recovering/Resolving]
  - Urinary retention [Recovered/Resolved]
  - Therapeutic product effect incomplete [Unknown]
  - Nervousness [Recovering/Resolving]
  - Anxiety [Recovered/Resolved]
  - Speech disorder [Recovering/Resolving]

NARRATIVE: CASE EVENT DATE: 20210101
